FAERS Safety Report 10222103 (Version 3)
Quarter: 2014Q3

REPORT INFORMATION
  Report Type: Spontaneous
  Country: US (occurrence: US)
  Receive Date: 20140606
  Receipt Date: 20140721
  Transmission Date: 20150326
  Serious: Yes (Other)
  Sender: FDA-Public Use
  Company Number: US-009507513-1406USA002378

PATIENT
  Age: 55 Year
  Sex: Female
  Weight: 55 kg

DRUGS (9)
  1. PEMETREXED DISODIUM [Concomitant]
     Active Substance: PEMETREXED DISODIUM
     Dosage: CYCLE 1
     Dates: start: 20140401
  2. CARBOPLATIN. [Concomitant]
     Active Substance: CARBOPLATIN
     Dosage: CYCLE 3
     Dates: start: 20140513
  3. ZOFRAN [Concomitant]
     Active Substance: ONDANSETRON HYDROCHLORIDE
     Dosage: UNK
  4. CARBOPLATIN. [Concomitant]
     Active Substance: CARBOPLATIN
     Dosage: CYCLE 1
     Dates: start: 20140401
  5. EMEND [Suspect]
     Active Substance: APREPITANT
     Indication: PROPHYLAXIS OF NAUSEA AND VOMITING
     Dosage: TOTAL DAILY DOSE 150 MG
     Route: 042
     Dates: start: 20140422
  6. ALOXI [Concomitant]
     Active Substance: PALONOSETRON HYDROCHLORIDE
     Dosage: UNK
  7. EMEND [Suspect]
     Active Substance: APREPITANT
     Indication: PREMEDICATION
     Dosage: TOTAL DAILY DOSE 150 MG
     Route: 042
     Dates: start: 20140513, end: 20140513
  8. DECADRON [Concomitant]
     Active Substance: DEXAMETHASONE
     Dosage: UNK
  9. PEMETREXED DISODIUM [Concomitant]
     Active Substance: PEMETREXED DISODIUM
     Dosage: CYCLE 3
     Dates: start: 20140513

REACTIONS (8)
  - Paraesthesia [Recovered/Resolved]
  - Wheezing [Recovered/Resolved]
  - Hot flush [Recovered/Resolved]
  - Feeling hot [Recovered/Resolved]
  - Lung adenocarcinoma metastatic [Unknown]
  - Tremor [Recovered/Resolved]
  - Flushing [Recovered/Resolved]
  - Malaise [Recovered/Resolved]

NARRATIVE: CASE EVENT DATE: 20140513
